FAERS Safety Report 7780636-0 (Version None)
Quarter: 2011Q3

REPORT INFORMATION
  Report Type: 
  Country: None (occurrence: None)
  Receive Date: 20110927
  Receipt Date: 20110114
  Transmission Date: 20111222
  Serious: No
  Sender: FDA-Public Use
  Company Number: US-BRISTOL-MYERS SQUIBB COMPANY-15487549

PATIENT
  Age: 77 Year
  Sex: Female
  Weight: 59 kg

DRUGS (10)
  1. COUMADIN [Concomitant]
  2. AVAPRO [Suspect]
     Indication: HYPERTENSION
     Dosage: SINCE MORE THAN A YEAR AGO
  3. TOPROL-XL [Concomitant]
  4. RAMIPRIL [Concomitant]
  5. GLUCOSAMINE [Concomitant]
  6. CHONDROITIN [Concomitant]
  7. LIPITOR [Concomitant]
  8. VITAMIN D [Concomitant]
  9. CELEBREX [Concomitant]
  10. MULTAQ [Suspect]

REACTIONS (1)
  - BLOOD CREATININE INCREASED [None]
